FAERS Safety Report 8808561 (Version 3)
Quarter: 2012Q4

REPORT INFORMATION
  Report Type: Report from Study
  Country: NL (occurrence: NL)
  Receive Date: 20120926
  Receipt Date: 20121205
  Transmission Date: 20130627
  Serious: Yes (Hospitalization, Other)
  Sender: FDA-Public Use
  Company Number: PHHO2012NL013757

PATIENT
  Age: 40 Year
  Sex: Female
  Weight: 54 kg

DRUGS (3)
  1. CGS 20267 [Suspect]
     Indication: BREAST CANCER
     Dosage: 2.5 mg, QD
     Route: 048
     Dates: start: 20090729
  2. TAXOTERE [Suspect]
     Dosage: 120 mg, UNK
     Dates: start: 20090316, end: 20090629
  3. XELODA [Suspect]
     Dosage: 2000 mg, UNK
     Dates: start: 20090316, end: 20090712

REACTIONS (1)
  - Chondrosarcoma [Recovered/Resolved]
